FAERS Safety Report 16907050 (Version 1)
Quarter: 2019Q4

REPORT INFORMATION
  Report Type: Spontaneous
  Country: FR (occurrence: FR)
  Receive Date: 20191011
  Receipt Date: 20191011
  Transmission Date: 20200122
  Serious: Yes (Hospitalization)
  Sender: FDA-Public Use
  Company Number: FR-EMD SERONO-E2B_90071356

PATIENT
  Age: 24 Year
  Sex: Female

DRUGS (4)
  1. OVITRELLE [Suspect]
     Active Substance: CHORIOGONADOTROPIN ALFA
     Indication: CONTROLLED OVARIAN STIMULATION
     Route: 058
     Dates: start: 20190403
  2. DECAPEPTYL (ACETATE) [Suspect]
     Active Substance: TRIPTORELIN ACETATE
     Indication: CONTROLLED OVARIAN STIMULATION
     Route: 058
     Dates: start: 20190403
  3. CETROTIDE [Suspect]
     Active Substance: CETRORELIX ACETATE
     Indication: CONTROLLED OVARIAN STIMULATION
     Route: 058
     Dates: start: 20190329, end: 20190403
  4. FERTISTARTKIT [Suspect]
     Active Substance: FOLLITROPIN\LUTEINIZING HORMONE
     Indication: CONTROLLED OVARIAN STIMULATION
     Route: 058
     Dates: start: 20190322, end: 20190402

REACTIONS (4)
  - Ovarian hyperstimulation syndrome [Recovered/Resolved]
  - Peritoneal haemorrhage [Recovered/Resolved]
  - Pelvic pain [Recovered/Resolved]
  - Effusion [Recovered/Resolved]

NARRATIVE: CASE EVENT DATE: 20190405
